FAERS Safety Report 21163116 (Version 2)
Quarter: 2022Q3

REPORT INFORMATION
  Report Type: Spontaneous
  Country: US (occurrence: US)
  Receive Date: 20220802
  Receipt Date: 20220826
  Transmission Date: 20221026
  Serious: No
  Sender: FDA-Public Use
  Company Number: US-PFIZER INC-202200896595

PATIENT
  Age: 79 Year
  Sex: Female
  Weight: 40.816 kg

DRUGS (1)
  1. NORVASC [Suspect]
     Active Substance: AMLODIPINE BESYLATE
     Indication: Blood pressure decreased
     Dosage: 2.5 MG, AS NEEDED

REACTIONS (3)
  - Dizziness [Unknown]
  - Fatigue [Unknown]
  - Off label use [Unknown]
